FAERS Safety Report 7812393-3 (Version None)
Quarter: 2011Q4

REPORT INFORMATION
  Report Type: 
  Country: None (occurrence: None)
  Receive Date: 20111011
  Receipt Date: 20110927
  Transmission Date: 20120403
  Serious: Yes (Death)
  Sender: FDA-Public Use
  Company Number: 2011CP000158

PATIENT
  Age: 19 Year
  Sex: Male

DRUGS (8)
  1. LEVOMEPROMAZINE (LEVOMEPROMAZINE) [Suspect]
     Indication: ANXIETY
     Dosage: 220 MG; 1 DAY; PO
     Route: 048
     Dates: start: 20110621, end: 20110710
  2. HYDROXYZINE HYDROCHLORIDE [Suspect]
     Indication: ANXIETY
     Dosage: 400 MG; 1 DAY; PO
     Route: 048
     Dates: start: 20110622, end: 20110710
  3. LEPTICUR (TROPATEPINE HYDROCHLORIDE) [Suspect]
     Indication: EXTRAPYRAMIDAL DISORDER
     Dosage: 10 MG; 1 DAY; PO
     Route: 048
     Dates: start: 20110622, end: 20110710
  4. LANSOYL [Concomitant]
  5. SULFARLEM [Concomitant]
  6. ACUPAN [Suspect]
     Dosage: ;IV
     Route: 042
     Dates: start: 20110711
  7. ACETAMINOPHEN [Suspect]
     Dosage: ;IV
     Route: 042
     Dates: start: 20110711
  8. CLOZAPINE [Suspect]
     Indication: PSYCHOTIC DISORDER
     Dosage: ;PO
     Route: 048
     Dates: start: 20110629, end: 20110710

REACTIONS (9)
  - CONSTIPATION [None]
  - HAEMOGLOBIN INCREASED [None]
  - ASCITES [None]
  - C-REACTIVE PROTEIN INCREASED [None]
  - BLOOD POTASSIUM INCREASED [None]
  - NAUSEA [None]
  - CARDIO-RESPIRATORY ARREST [None]
  - VOMITING [None]
  - PAIN [None]
